FAERS Safety Report 10777271 (Version 1)
Quarter: 2015Q1

REPORT INFORMATION
  Report Type: Spontaneous
  Country: US (occurrence: US)
  Receive Date: 20150209
  Receipt Date: 20150209
  Transmission Date: 20150721
  Serious: No
  Sender: FDA-Public Use
  Company Number: US-RECKITT BENCKISER PHARMACEUTICAL, INC-RB-66167-2014

PATIENT

DRUGS (3)
  1. SUBOXONE [Suspect]
     Active Substance: BUPRENORPHINE HYDROCHLORIDE\NALOXONE HYDROCHLORIDE
     Indication: PRODUCT USED FOR UNKNOWN INDICATION
     Dosage: SUBOXONE FILM
     Route: 063
  2. BUPRENORPHINE UNSPECIFIED [Suspect]
     Active Substance: BUPRENORPHINE
     Dosage: MATERNAL DOSING DETAILS UNKNOWN
     Route: 063
  3. BUPRENORPHINE UNSPECIFIED [Suspect]
     Active Substance: BUPRENORPHINE
     Indication: PRODUCT USED FOR UNKNOWN INDICATION
     Dosage: MATERNAL DOSING DETAILS UNKNOWN
     Route: 064

REACTIONS (4)
  - Faeces hard [Recovered/Resolved]
  - Exposure during breast feeding [Unknown]
  - Infantile colic [Recovered/Resolved]
  - Foetal exposure during pregnancy [Recovered/Resolved]
